FAERS Safety Report 6242637-3 (Version None)
Quarter: 2009Q2

REPORT INFORMATION
  Report Type: 
  Country: None (occurrence: None)
  Receive Date: 20090624
  Receipt Date: 20090617
  Transmission Date: 20091009
  Serious: Yes (Other)
  Sender: FDA-Public Use
  Company Number: US-B.I. PHARMACEUTICALS,INC./RIDGEFIELD-2009-BP-06459BP

PATIENT
  Age: 62 Year
  Sex: Male
  Weight: 67.1 kg

DRUGS (2)
  1. SPIRIVA [Suspect]
     Indication: CHRONIC OBSTRUCTIVE PULMONARY DISEASE
     Dosage: 18 MCG
     Route: 055
     Dates: start: 20090201, end: 20090527
  2. ASPIRIN [Concomitant]

REACTIONS (6)
  - DYSPNOEA [None]
  - PHARYNGEAL OEDEMA [None]
  - SWOLLEN TONGUE [None]
  - TONGUE DISCOLOURATION [None]
  - TONGUE DISORDER [None]
  - TONGUE EXFOLIATION [None]
